FAERS Safety Report 23050057 (Version 1)
Quarter: 2023Q4

REPORT INFORMATION
  Report Type: Report from Study
  Country: US (occurrence: US)
  Receive Date: 20231010
  Receipt Date: 20231010
  Transmission Date: 20240110
  Serious: Yes (Hospitalization, Other)
  Sender: FDA-Public Use
  Company Number: US-ABBVIE-5442411

PATIENT
  Sex: Female

DRUGS (3)
  1. RINVOQ [Suspect]
     Active Substance: UPADACITINIB
     Indication: Rheumatoid arthritis
     Dosage: RINVOQ STRENGTH: 15 MG
     Route: 048
     Dates: start: 202201, end: 202212
  2. RINVOQ [Suspect]
     Active Substance: UPADACITINIB
     Indication: Rheumatoid arthritis
     Dosage: RINVOQ STRENGTH: 15 MG?LAST ADMIN DATE:2023
     Route: 048
     Dates: start: 202303
  3. RINVOQ [Suspect]
     Active Substance: UPADACITINIB
     Indication: Rheumatoid arthritis
     Dosage: RINVOQ STRENGTH: 15 MG?FIRST ADMIN DATE: 2023
     Route: 048

REACTIONS (4)
  - Hysterectomy [Unknown]
  - Pain in extremity [Not Recovered/Not Resolved]
  - Post procedural complication [Unknown]
  - Nasopharyngitis [Recovered/Resolved]

NARRATIVE: CASE EVENT DATE: 20230101
